FAERS Safety Report 9341067 (Version 1)
Quarter: 2013Q2

REPORT INFORMATION
  Report Type: Spontaneous
  Country: JP (occurrence: JP)
  Receive Date: 20130610
  Receipt Date: 20130610
  Transmission Date: 20140414
  Serious: Yes (Other)
  Sender: FDA-Public Use
  Company Number: JP-B.I. PHARMACEUTICALS,INC./RIDGEFIELD-2013-BI-16238NB

PATIENT
  Age: 8 Decade
  Sex: Female

DRUGS (1)
  1. MICAMLO COMBINATION [Suspect]
     Indication: HYPERTENSION
     Dosage: 1 ANZ
     Route: 048

REACTIONS (1)
  - Renal tubular acidosis [Recovered/Resolved]
